FAERS Safety Report 7517879-7 (Version None)
Quarter: 2011Q2

REPORT INFORMATION
  Report Type: 
  Country: None (occurrence: None)
  Receive Date: 20110526
  Receipt Date: 20110526
  Transmission Date: 20111010
  Serious: Yes (Other)
  Sender: FDA-Public Use
  Company Number: None

PATIENT
  Age: 41 Year
  Sex: Female

DRUGS (1)
  1. PREDNISOLONE ACETATE OPHTHALMIC SUSPENSION/DROPS [Suspect]
     Indication: UVEITIS
     Dosage: ONE GTT Q4H RIGHT EYE; ONE GTT TID - LEFT EYE
     Dates: start: 20071001, end: 20071015

REACTIONS (6)
  - MIGRAINE [None]
  - INTRAOCULAR PRESSURE INCREASED [None]
  - HEADACHE [None]
  - PRODUCT SUBSTITUTION ISSUE [None]
  - VISION BLURRED [None]
  - DRUG EFFECT DECREASED [None]
